FAERS Safety Report 8181751-2 (Version None)
Quarter: 2012Q1

REPORT INFORMATION
  Report Type: 
  Country: None (occurrence: None)
  Receive Date: 20120302
  Receipt Date: 20120224
  Transmission Date: 20120608
  Serious: Yes (Other)
  Sender: FDA-Public Use
  Company Number: PHHY2011JP96258

PATIENT
  Age: 78 Year
  Sex: Male

DRUGS (2)
  1. ETHAMBUTOL HYDROCHLORIDE [Suspect]
     Indication: DISSEMINATED TUBERCULOSIS
     Route: 048
  2. RIFADIN [Concomitant]
     Indication: DISSEMINATED TUBERCULOSIS
     Route: 048

REACTIONS (1)
  - OPTIC NEURITIS [None]
